FAERS Safety Report 5623136-6 (Version None)
Quarter: 2008Q1

REPORT INFORMATION
  Report Type: 
  Country: None (occurrence: None)
  Receive Date: 20080212
  Receipt Date: 20080205
  Transmission Date: 20080703
  Serious: Yes (Death)
  Sender: FDA-Public Use
  Company Number: B0507162A

PATIENT
  Age: 57 Year
  Sex: Male

DRUGS (6)
  1. ACETAMINOPHEN [Suspect]
  2. KLORPROMAN [Suspect]
     Indication: SCHIZOPHRENIA
     Route: 048
     Dates: start: 20020101
  3. CISORDINOL [Suspect]
     Indication: SCHIZOPHRENIA
     Route: 065
     Dates: start: 19940101
  4. SERONIL [Suspect]
     Route: 048
     Dates: start: 20040101
  5. BURANA [Concomitant]
  6. DIAZEPAM [Concomitant]

REACTIONS (7)
  - ABDOMINAL PAIN UPPER [None]
  - BRONCHOPNEUMONIA [None]
  - CARDIAC ARREST [None]
  - HEPATIC NECROSIS [None]
  - JAUNDICE [None]
  - NAUSEA [None]
  - PNEUMONIA [None]
